FAERS Safety Report 5907455-1 (Version None)
Quarter: 2008Q4

REPORT INFORMATION
  Report Type: 
  Country: None (occurrence: None)
  Receive Date: 20081003
  Receipt Date: 20080926
  Transmission Date: 20090506
  Serious: Yes (Hospitalization)
  Sender: FDA-Public Use
  Company Number: B0524491A

PATIENT
  Age: 72 Year
  Sex: Male

DRUGS (4)
  1. MODACIN [Suspect]
     Indication: PNEUMONIA
     Dosage: 1G TWICE PER DAY
     Route: 042
     Dates: start: 20080520, end: 20080522
  2. TIENAM [Suspect]
     Indication: PNEUMONIA
     Dosage: .5G TWICE PER DAY
     Route: 042
     Dates: start: 20080522, end: 20080530
  3. PENTCILLIN [Suspect]
     Indication: PNEUMONIA
     Dosage: 1G FOUR TIMES PER DAY
     Route: 042
     Dates: start: 20080522, end: 20080530
  4. CLINDAMYCIN HCL [Suspect]
     Indication: PNEUMONIA
     Dosage: 600MG THREE TIMES PER DAY
     Route: 042
     Dates: start: 20080520, end: 20080522

REACTIONS (7)
  - BLISTER [None]
  - DRUG ERUPTION [None]
  - GENERALISED ERYTHEMA [None]
  - PYREXIA [None]
  - RASH ERYTHEMATOUS [None]
  - SKIN EROSION [None]
  - TOXIC EPIDERMAL NECROLYSIS [None]
